FAERS Safety Report 18110219 (Version 2)
Quarter: 2020Q3

REPORT INFORMATION
  Report Type: Report from Study
  Country: GB (occurrence: GB)
  Receive Date: 20200804
  Receipt Date: 20200828
  Transmission Date: 20201103
  Serious: Yes (Hospitalization, Other)
  Sender: FDA-Public Use
  Company Number: GB-SAMSUNG BIOEPIS-SB-2020-21597

PATIENT
  Age: 74 Year
  Sex: Female

DRUGS (4)
  1. IMRALDI [Suspect]
     Active Substance: ADALIMUMAB
     Dosage: INDUCTION DOSE: WEEK TWO
     Route: 058
     Dates: start: 20200612
  2. IMRALDI [Suspect]
     Active Substance: ADALIMUMAB
     Dosage: MAINTENANCE DOSE
     Route: 058
  3. IMRALDI [Suspect]
     Active Substance: ADALIMUMAB
     Dosage: INDUCTION DOSE: WEEK FOUR
     Route: 058
  4. IMRALDI [Suspect]
     Active Substance: ADALIMUMAB
     Indication: CROHN^S DISEASE
     Dosage: INDUCTION DOSE: WEEK ZERO
     Route: 058
     Dates: start: 20200529

REACTIONS (12)
  - Chest discomfort [Unknown]
  - Nausea [Unknown]
  - Decreased appetite [Unknown]
  - Myalgia [Unknown]
  - Suspected COVID-19 [Unknown]
  - Fatigue [Unknown]
  - Malaise [Unknown]
  - Headache [Unknown]
  - Diarrhoea [Unknown]
  - Feeling of body temperature change [Not Recovered/Not Resolved]
  - Chills [Unknown]
  - Body temperature abnormal [Unknown]

NARRATIVE: CASE EVENT DATE: 20200626
